FAERS Safety Report 13284454 (Version 1)
Quarter: 2017Q1

REPORT INFORMATION
  Report Type: Spontaneous
  Country: ES (occurrence: ES)
  Receive Date: 20170301
  Receipt Date: 20170301
  Transmission Date: 20170428
  Serious: Yes (Death, Hospitalization, Other)
  Sender: FDA-Public Use
  Company Number: ES-BAYER-2017-036327

PATIENT
  Age: 61 Year
  Sex: Male

DRUGS (2)
  1. NEXAVAR [Suspect]
     Active Substance: SORAFENIB
     Indication: HEPATOCELLULAR CARCINOMA
     Dosage: DAILY DOSE 800 MG
  2. NEXAVAR [Suspect]
     Active Substance: SORAFENIB
     Indication: HEPATOCELLULAR CARCINOMA
     Dosage: 400 MG, QD

REACTIONS (9)
  - Tumour thrombosis [Unknown]
  - Left ventricular hypertrophy [Unknown]
  - Myocardial ischaemia [Unknown]
  - Left ventricular dysfunction [Unknown]
  - Angina pectoris [Recovered/Resolved]
  - Angina pectoris [Unknown]
  - General physical health deterioration [Fatal]
  - Abdominal pain [Fatal]
  - Hepatocellular carcinoma [Fatal]
